FAERS Safety Report 11069956 (Version 1)
Quarter: 2015Q2

REPORT INFORMATION
  Report Type: Spontaneous
  Country: US (occurrence: US)
  Receive Date: 20150427
  Receipt Date: 20150427
  Transmission Date: 20150821
  Serious: No
  Sender: FDA-Public Use
  Company Number: US-ASTELLAS-2014US017864

PATIENT
  Age: 58 Year
  Sex: Male

DRUGS (2)
  1. LEXISCAN [Suspect]
     Active Substance: REGADENOSON
     Indication: SCAN MYOCARDIAL PERFUSION
     Dosage: UNK UNK, ONCE
     Route: 042
     Dates: start: 20141119, end: 20141119
  2. LEXISCAN [Suspect]
     Active Substance: REGADENOSON
     Dosage: UNK UNK, ONCE
     Route: 042
     Dates: start: 20141120, end: 20141120

REACTIONS (1)
  - Injection site extravasation [Recovered/Resolved]

NARRATIVE: CASE EVENT DATE: 20141119
